FAERS Safety Report 18970726 (Version 1)
Quarter: 2021Q1

REPORT INFORMATION
  Report Type: Other
  Country: US (occurrence: US)
  Receive Date: 20210305
  Receipt Date: 20210305
  Transmission Date: 20210420
  Serious: Yes (Hospitalization, Other)
  Sender: FDA-Public Use
  Company Number: US-AMAG PHARMACEUTICALS, INC.-AMAG202100658

PATIENT
  Age: 39 Year
  Sex: Female
  Weight: 71.73 kg

DRUGS (1)
  1. MAKENA [Suspect]
     Active Substance: HYDROXYPROGESTERONE CAPROATE
     Indication: PREMATURE DELIVERY
     Dosage: 275MG/1.1ML
     Route: 058
     Dates: start: 20201113, end: 20210101

REACTIONS (2)
  - Premature delivery [Recovered/Resolved]
  - Placenta praevia haemorrhage [Recovered/Resolved]

NARRATIVE: CASE EVENT DATE: 20201127
